FAERS Safety Report 4565534-8 (Version None)
Quarter: 2005Q1

REPORT INFORMATION
  Report Type: 
  Country: None (occurrence: None)
  Receive Date: 20050125
  Receipt Date: 20050125
  Transmission Date: 20050727
  Serious: No
  Sender: FDA-Public Use
  Company Number: None

PATIENT
  Age: 92 Year
  Sex: Female
  Weight: 57.1532 kg

DRUGS (1)
  1. ZYVOX [Suspect]
     Dosage: 600MG    TWICE DAILY   ORAL
     Route: 048
     Dates: start: 20040502, end: 20040515

REACTIONS (1)
  - THROMBOCYTOPENIA [None]
